FAERS Safety Report 10237724 (Version 2)
Quarter: 2014Q2

REPORT INFORMATION
  Report Type: Spontaneous
  Country: US (occurrence: US)
  Receive Date: 20140616
  Receipt Date: 20140627
  Transmission Date: 20141212
  Serious: Yes (Other)
  Sender: FDA-Public Use
  Company Number: US-BEH-2014043044

PATIENT
  Age: 14 Year
  Sex: Male

DRUGS (1)
  1. BERINERT [Suspect]
     Indication: HEREDITARY ANGIOEDEMA
     Dates: start: 201205

REACTIONS (4)
  - Hereditary angioedema [Unknown]
  - Lip swelling [Unknown]
  - Oedema peripheral [Unknown]
  - Swollen tongue [Unknown]
